FAERS Safety Report 5242733-3 (Version None)
Quarter: 2007Q1

REPORT INFORMATION
  Report Type: 
  Country: None (occurrence: None)
  Receive Date: 20061201
  Receipt Date: 20060911
  Transmission Date: 20070707
  Serious: No
  Sender: FDA-Public Use
  Company Number: 2006PV012260

PATIENT
  Age: 71 Year
  Sex: Male
  Weight: 99.1109 kg

DRUGS (8)
  1. BYETTA [Suspect]
     Indication: DIABETES MELLITUS NON-INSULIN-DEPENDENT
     Dosage: SEE IMAGE
     Route: 058
     Dates: start: 20060301, end: 20060401
  2. BYETTA [Suspect]
     Indication: DIABETES MELLITUS NON-INSULIN-DEPENDENT
     Dosage: SEE IMAGE
     Route: 058
     Dates: start: 20060329, end: 20060401
  3. BYETTA [Suspect]
     Indication: DIABETES MELLITUS NON-INSULIN-DEPENDENT
     Dosage: SEE IMAGE
     Route: 058
     Dates: start: 20060401
  4. GLIMEPIRIDE [Concomitant]
  5. ACTOS [Concomitant]
  6. GABAPENTIN [Concomitant]
  7. COZAAR [Concomitant]
  8. CRESTOR [Concomitant]

REACTIONS (4)
  - BACK PAIN [None]
  - EARLY SATIETY [None]
  - INFREQUENT BOWEL MOVEMENTS [None]
  - PAIN IN EXTREMITY [None]
